FAERS Safety Report 5719107-1 (Version None)
Quarter: 2008Q2

REPORT INFORMATION
  Report Type: 
  Country: None (occurrence: None)
  Receive Date: 20080427
  Receipt Date: 20080414
  Transmission Date: 20081010
  Serious: Yes (Other)
  Sender: FDA-Public Use
  Company Number: PHHY2008BR05937

PATIENT
  Age: 39 Year
  Weight: 63 kg

DRUGS (1)
  1. FORASEQ [Suspect]
     Indication: BRONCHITIS
     Dosage: 2 CAPSULES ONCE A DAY
     Dates: start: 20060101, end: 20080413

REACTIONS (4)
  - MUSCLE SPASMS [None]
  - SUFFOCATION FEELING [None]
  - TACHYCARDIA [None]
  - TREMOR [None]
